FAERS Safety Report 6101323-0 (Version None)
Quarter: 2009Q1

REPORT INFORMATION
  Report Type: 
  Country: None (occurrence: None)
  Receive Date: 20090227
  Receipt Date: 20080512
  Transmission Date: 20090719
  Serious: Yes (Other)
  Sender: FDA-Public Use
  Company Number: 2008S1008172

PATIENT
  Sex: Female

DRUGS (3)
  1. AMNESTEEM [Suspect]
     Dosage: ORAL ; ORAL
     Route: 048
     Dates: start: 20031001, end: 20031101
  2. AMNESTEEM [Suspect]
     Dosage: ORAL ; ORAL
     Route: 048
     Dates: start: 20040101, end: 20040201
  3. ACCUTANE [Suspect]
     Dosage: ORAL
     Route: 048
     Dates: start: 20030901, end: 20031201

REACTIONS (1)
  - INFLAMMATORY BOWEL DISEASE [None]
